FAERS Safety Report 9244413 (Version 3)
Quarter: 2013Q4

REPORT INFORMATION
  Report Type: Spontaneous
  Country: JP (occurrence: JP)
  Receive Date: 20130422
  Receipt Date: 20131002
  Transmission Date: 20140711
  Serious: Yes (Other)
  Sender: FDA-Public Use
  Company Number: JP-JNJFOC-20130410010

PATIENT
  Age: 40 Year
  Sex: Male
  Weight: 52 kg

DRUGS (6)
  1. REMICADE [Suspect]
     Indication: CROHN^S DISEASE
     Route: 042
     Dates: start: 20130726
  2. REMICADE [Suspect]
     Indication: CROHN^S DISEASE
     Route: 042
     Dates: start: 20120316
  3. REMICADE [Suspect]
     Indication: CROHN^S DISEASE
     Dosage: 31ST DOSE OF INFLIXIMAB
     Route: 042
     Dates: start: 20111125
  4. REMICADE [Suspect]
     Indication: CROHN^S DISEASE
     Route: 042
     Dates: start: 20080826
  5. PENTASA [Concomitant]
     Indication: PROPHYLAXIS
     Dosage: DOSE FOR 1 TREATMENT: 500 MG
     Route: 048
  6. MIYA BM [Concomitant]
     Indication: BOWEL MOVEMENT IRREGULARITY
     Dosage: DOSE FOR 1 TREATMENT: 1 G
     Route: 048

REACTIONS (3)
  - Gallbladder disorder [Recovering/Resolving]
  - Cholelithiasis [Recovering/Resolving]
  - Hepatic function abnormal [Recovering/Resolving]
